FAERS Safety Report 19062773 (Version 1)
Quarter: 2021Q1

REPORT INFORMATION
  Report Type: Spontaneous
  Country: GR (occurrence: GR)
  Receive Date: 20210326
  Receipt Date: 20210326
  Transmission Date: 20210420
  Serious: Yes (Hospitalization)
  Sender: FDA-Public Use
  Company Number: GR-MYLANLABS-2021M1017356

PATIENT
  Age: 21 Year
  Sex: Male

DRUGS (2)
  1. OLANZAPINE MYLAN [Suspect]
     Active Substance: OLANZAPINE
     Indication: PSYCHOTIC DISORDER
     Dosage: UNK UNK, QD
  2. FLUOXETINE [Suspect]
     Active Substance: FLUOXETINE HYDROCHLORIDE
     Indication: PSYCHOTIC DISORDER
     Dosage: UNK UNK, QD

REACTIONS (1)
  - Drug ineffective [Unknown]
